FAERS Safety Report 7713236-9 (Version None)
Quarter: 2011Q3

REPORT INFORMATION
  Report Type: 
  Country: None (occurrence: None)
  Receive Date: 20110826
  Receipt Date: 20110817
  Transmission Date: 20111222
  Serious: Yes (Hospitalization, Other)
  Sender: FDA-Public Use
  Company Number: AU-GENZYME-THYM-1002672

PATIENT
  Sex: Male
  Weight: 82.3 kg

DRUGS (13)
  1. PREDNISOLONE [Concomitant]
     Dosage: 25 MG, QD
     Route: 048
     Dates: start: 20110808
  2. CYCLOSPORINE [Concomitant]
     Indication: GRAFT VERSUS HOST DISEASE
     Dosage: 150 MG, BID
     Route: 048
     Dates: start: 20110808
  3. THYMOGLOBULIN [Suspect]
     Indication: STEM CELL TRANSPLANT
     Dosage: 2 MG/KG, QD
     Route: 042
     Dates: start: 20100816, end: 20100817
  4. THYMOGLOBULIN [Suspect]
     Dosage: 0.5 MG/KG, QD
     Route: 042
     Dates: start: 20100818, end: 20100818
  5. BACTRIM [Concomitant]
     Indication: PROPHYLAXIS
     Dosage: 800 MG, BID
     Route: 048
     Dates: start: 20100901
  6. PREDNISOLONE [Concomitant]
     Indication: GRAFT VERSUS HOST DISEASE
     Dosage: 12.5 MG, BID
     Route: 048
     Dates: start: 20100901, end: 20110717
  7. CYTARABINE [Suspect]
     Indication: STEM CELL TRANSPLANT
     Dosage: UNK
  8. AZATHIOPRINE [Concomitant]
     Indication: GRAFT VERSUS HOST DISEASE
     Dosage: 50 MG, BID
     Route: 048
     Dates: start: 20100501
  9. VALTREX [Concomitant]
     Indication: ANTIVIRAL PROPHYLAXIS
     Dosage: 500 MG, QD
     Route: 048
     Dates: start: 20110201
  10. FLUDARA [Suspect]
     Indication: STEM CELL TRANSPLANT
     Route: 065
  11. POSACONAZOLE [Concomitant]
     Indication: ANTIFUNGAL PROPHYLAXIS
     Dosage: 200 MG, TID
     Route: 048
     Dates: start: 20100801
  12. BACTRIM [Concomitant]
     Dosage: 160 MG, BID
     Route: 048
     Dates: start: 20100901
  13. OMEPRAZOLE [Concomitant]
     Indication: PROPHYLAXIS
     Dosage: 40 MG, QD
     Route: 048
     Dates: start: 20100901

REACTIONS (8)
  - ARTERIOSPASM CORONARY [None]
  - PARAESTHESIA [None]
  - ARTHRALGIA [None]
  - POLYARTHRITIS [None]
  - FOOD ALLERGY [None]
  - NEURALGIA [None]
  - ANGIOEDEMA [None]
  - GRAFT VERSUS HOST DISEASE [None]
